FAERS Safety Report 6655449-3 (Version None)
Quarter: 2010Q1

REPORT INFORMATION
  Report Type: 
  Country: None (occurrence: None)
  Receive Date: 20100329
  Receipt Date: 20100325
  Transmission Date: 20100710
  Serious: Yes (Hospitalization)
  Sender: FDA-Public Use
  Company Number: GB-ELI_LILLY_AND_COMPANY-GB200910002005

PATIENT
  Sex: Female

DRUGS (8)
  1. PEMETREXED [Suspect]
     Indication: NON-SMALL CELL LUNG CANCER
     Dosage: 825 MG, EVERY 3 WEEKS
     Route: 042
     Dates: start: 20090610, end: 20090907
  2. CISPLATIN [Suspect]
     Indication: NON-SMALL CELL LUNG CANCER
     Dosage: UNK, ONCE EVERY THREE WEEKS
     Dates: start: 20090610
  3. OMEPRAZOLE [Concomitant]
     Indication: GASTROOESOPHAGEAL REFLUX DISEASE
  4. DOXAZOSIN [Concomitant]
     Indication: HYPERTENSION
  5. ATENOLOL [Concomitant]
     Indication: HYPERTENSION
  6. FOLIC ACID [Concomitant]
     Indication: PROPHYLAXIS
  7. TIMOPTOL [Concomitant]
     Indication: GLAUCOMA
  8. XALATAN [Concomitant]
     Indication: GLAUCOMA

REACTIONS (1)
  - SUPERIOR VENA CAVAL OCCLUSION [None]
